FAERS Safety Report 9916194 (Version 1)
Quarter: 2014Q1

REPORT INFORMATION
  Report Type: Spontaneous
  Country: US (occurrence: None)
  Receive Date: 20140219
  Receipt Date: 20140219
  Transmission Date: 20141002
  Serious: Yes (Hospitalization)
  Sender: FDA-Public Use
  Company Number: UTC-044333

PATIENT
  Age: 44 Year
  Sex: Female
  Weight: 90.91 kg

DRUGS (4)
  1. REMODULIN [Suspect]
     Indication: PULMONARY ARTERIAL HYPERTENSION
     Dates: start: 20131127
  2. ADCIRCA (TADALAFIL) [Suspect]
  3. TRACLEER (BOSENTAN) [Suspect]
  4. WARFARIN [Suspect]

REACTIONS (4)
  - Clostridium difficile colitis [None]
  - Nausea [None]
  - Vomiting [None]
  - Malaise [None]
